FAERS Safety Report 7661851-3 (Version None)
Quarter: 2011Q3

REPORT INFORMATION
  Report Type: 
  Country: None (occurrence: None)
  Receive Date: 20110805
  Receipt Date: 20101213
  Transmission Date: 20111222
  Serious: No
  Sender: FDA-Public Use
  Company Number: US-ABBOTT-10P-163-0691260-00

PATIENT
  Sex: Female
  Weight: 63.56 kg

DRUGS (4)
  1. LOTREL [Concomitant]
     Indication: PRODUCT USED FOR UNKNOWN INDICATION
  2. NIASPAN [Suspect]
     Indication: BLOOD CHOLESTEROL INCREASED
     Dosage: SAMPLES AT BEDTIME
     Dates: start: 20101201, end: 20101201
  3. ASPIRIN [Concomitant]
     Indication: PRODUCT USED FOR UNKNOWN INDICATION
     Dosage: IN MORNING EVERY OTHER DAY
  4. BUSPAR [Concomitant]
     Indication: PRODUCT USED FOR UNKNOWN INDICATION

REACTIONS (5)
  - PRURITUS [None]
  - FLUSHING [None]
  - RASH [None]
  - ERYTHEMA [None]
  - MIDDLE INSOMNIA [None]
